FAERS Safety Report 4742810-7 (Version None)
Quarter: 2005Q3

REPORT INFORMATION
  Report Type: 
  Country: None (occurrence: None)
  Receive Date: 20050811
  Receipt Date: 20050809
  Transmission Date: 20060218
  Serious: Yes (Other)
  Sender: FDA-Public Use
  Company Number: US-GLAXOSMITHKLINE-A0569531A

PATIENT
  Age: 48 Year
  Sex: Female

DRUGS (6)
  1. LAMICTAL [Suspect]
     Indication: EPILEPSY
     Route: 048
     Dates: start: 20050609
  2. KEPPRA [Concomitant]
  3. TEGRETOL [Concomitant]
  4. PHENOBARBITAL [Concomitant]
  5. TEMODAR [Concomitant]
  6. ZOFRAN [Concomitant]

REACTIONS (11)
  - CONSTIPATION [None]
  - CONVULSION [None]
  - DIZZINESS [None]
  - FATIGUE [None]
  - INTESTINAL FUNCTIONAL DISORDER [None]
  - JOINT DISLOCATION [None]
  - JOINT LOCK [None]
  - MENTAL IMPAIRMENT [None]
  - OEDEMA PERIPHERAL [None]
  - PAIN IN EXTREMITY [None]
  - SOMNOLENCE [None]
